FAERS Safety Report 12432170 (Version 1)
Quarter: 2016Q2

REPORT INFORMATION
  Report Type: Spontaneous
  Country: US (occurrence: None)
  Receive Date: 20160602
  Receipt Date: 20160602
  Transmission Date: 20160815
  Serious: No
  Sender: FDA-Public Use
  Company Number: None

PATIENT
  Age: 65 Year
  Sex: Female

DRUGS (6)
  1. ANASTROZOLE. [Concomitant]
     Active Substance: ANASTROZOLE
  2. PILOCARPINE. [Concomitant]
     Active Substance: PILOCARPINE
  3. ZI... [Concomitant]
  4. IBRANCE [Suspect]
     Active Substance: PALBOCICLIB
     Indication: BREAST CANCER
     Dosage: 125MG QDX21 DAYS PO
     Route: 048
     Dates: start: 20160531
  5. TRAVACTAM [Concomitant]
  6. ARMAX [Concomitant]
     Active Substance: METRONIDAZOLE

REACTIONS (4)
  - Nausea [None]
  - Headache [None]
  - Yawning [None]
  - Hypersensitivity [None]

NARRATIVE: CASE EVENT DATE: 20160531
